FAERS Safety Report 20962366 (Version 1)
Quarter: 2022Q2

REPORT INFORMATION
  Report Type: Report from Study
  Country: BR (occurrence: BR)
  Receive Date: 20220615
  Receipt Date: 20220615
  Transmission Date: 20220721
  Serious: Yes (Hospitalization)
  Sender: FDA-Public Use
  Company Number: BR-NOVARTISPH-NVSC2022BR076936

PATIENT
  Age: 26 Year
  Sex: Male
  Weight: 88 kg

DRUGS (2)
  1. CRIZANLIZUMAB [Suspect]
     Active Substance: CRIZANLIZUMAB
     Indication: Sickle cell anaemia with crisis
     Dosage: 440 MG
     Route: 042
     Dates: start: 20201218
  2. HYDROXYUREA [Concomitant]
     Active Substance: HYDROXYUREA
     Indication: Sickle cell anaemia with crisis
     Dosage: 1500 MG, QD
     Route: 065
     Dates: start: 20210925

REACTIONS (5)
  - Hypersplenism [Recovered/Resolved]
  - Hypersplenism [Recovered/Resolved]
  - Hypersplenism [Recovered/Resolved]
  - Hypersplenism [Recovered/Resolved]
  - Hypersplenism [Unknown]

NARRATIVE: CASE EVENT DATE: 20210925
